FAERS Safety Report 5516835-8 (Version None)
Quarter: 2007Q4

REPORT INFORMATION
  Report Type: 
  Country: None (occurrence: None)
  Receive Date: 20071109
  Receipt Date: 20071026
  Transmission Date: 20080405
  Serious: No
  Sender: FDA-Public Use
  Company Number: 2007S1011021

PATIENT
  Age: 46 Year
  Sex: Female

DRUGS (1)
  1. DICLOFENAC (DICLOFENAC) [Suspect]
     Indication: ARTHRALGIA
     Dosage: INTRAMUSCULAR

REACTIONS (4)
  - MALAISE [None]
  - MULTI-ORGAN FAILURE [None]
  - NECROTISING FASCIITIS [None]
  - NO THERAPEUTIC RESPONSE [None]
